FAERS Safety Report 10130555 (Version 1)
Quarter: 2014Q2

REPORT INFORMATION
  Report Type: Spontaneous
  Country: IT (occurrence: IT)
  Receive Date: 20140428
  Receipt Date: 20140428
  Transmission Date: 20141212
  Serious: Yes (Hospitalization)
  Sender: FDA-Public Use
  Company Number: IT-SHIRE-IT201401400

PATIENT
  Age: 55 Year
  Sex: Female

DRUGS (3)
  1. XAGRID [Suspect]
     Indication: ESSENTIAL THROMBOCYTHAEMIA
     Dosage: 1 MG, 1X/DAY:QD
     Route: 065
     Dates: start: 2004
  2. XAGRID [Suspect]
     Dosage: 0.5 MG, 1X/DAY:QD
     Route: 065
  3. XAGRID [Suspect]
     Dosage: DOSE INCREASED AGAIN
     Dates: start: 200511

REACTIONS (3)
  - Metrorrhagia [Unknown]
  - Anaemia [Not Recovered/Not Resolved]
  - Palpitations [Recovered/Resolved]
